FAERS Safety Report 12782459 (Version 2)
Quarter: 2016Q3

REPORT INFORMATION
  Report Type: Report from Study
  Country: US (occurrence: US)
  Receive Date: 20160927
  Receipt Date: 20160928
  Transmission Date: 20161109
  Serious: Yes (Hospitalization)
  Sender: FDA-Public Use
  Company Number: US-BIOGEN-2016BI00295696

PATIENT
  Age: 31 Year
  Sex: Male

DRUGS (1)
  1. TECFIDERA [Suspect]
     Active Substance: DIMETHYL FUMARATE
     Indication: MULTIPLE SCLEROSIS
     Route: 048
     Dates: start: 20160111

REACTIONS (5)
  - Aphasia [Unknown]
  - Urinary tract infection [Unknown]
  - Drug ineffective [Unknown]
  - Impaired self-care [Unknown]
  - Decreased activity [Unknown]

NARRATIVE: CASE EVENT DATE: 20160919
